FAERS Safety Report 7909545-0 (Version None)
Quarter: 2011Q4

REPORT INFORMATION
  Report Type: 
  Country: None (occurrence: None)
  Receive Date: 20111111
  Receipt Date: 20111031
  Transmission Date: 20120403
  Serious: No
  Sender: FDA-Public Use
  Company Number: US-JNJFOC-20111100400

PATIENT
  Sex: Female
  Weight: 115.21 kg

DRUGS (5)
  1. INVEGA [Suspect]
     Indication: SCHIZOPHRENIA
     Route: 048
     Dates: start: 20101031, end: 20101031
  2. VISTARIL [Concomitant]
     Route: 048
  3. XANAX [Concomitant]
     Dosage: 2MG/TABLET/2MG/AT NIGHT/ORAL
     Route: 048
  4. XANAX [Concomitant]
     Route: 048
  5. PAXIL [Concomitant]
     Route: 048

REACTIONS (1)
  - WEIGHT INCREASED [None]
